FAERS Safety Report 13387450 (Version 1)
Quarter: 2017Q1

REPORT INFORMATION
  Report Type: Spontaneous
  Country: CH (occurrence: CH)
  Receive Date: 20170330
  Receipt Date: 20170330
  Transmission Date: 20170429
  Serious: Yes (Death)
  Sender: FDA-Public Use
  Company Number: CH-INCYTE CORPORATION-2017IN002119

PATIENT
  Age: 84 Year
  Sex: Female

DRUGS (7)
  1. PREDNISON [Concomitant]
     Active Substance: PREDNISONE
     Indication: PRODUCT USED FOR UNKNOWN INDICATION
     Dosage: 20 MG, QD
     Route: 065
     Dates: start: 20170126, end: 20170126
  2. MOTILIUM [Concomitant]
     Active Substance: DOMPERIDONE
     Indication: PRODUCT USED FOR UNKNOWN INDICATION
     Dosage: 10 MG, ONE DOSE
     Route: 065
     Dates: start: 20170127, end: 20170127
  3. JAKAVI [Suspect]
     Active Substance: RUXOLITINIB
     Indication: MYELODYSPLASTIC SYNDROME TRANSFORMATION
     Dosage: 10 MG, QD (2X10 MG)
     Route: 048
     Dates: start: 20170126, end: 20170127
  4. PANTOZOL [Suspect]
     Active Substance: PANTOPRAZOLE SODIUM
     Indication: PROPHYLAXIS
     Dosage: 40 MG, QD
     Route: 042
     Dates: start: 20170124, end: 20170128
  5. LITALIR [Suspect]
     Active Substance: HYDROXYUREA
     Indication: MYELOPROLIFERATIVE NEOPLASM
     Dosage: 500 MG, QD
     Route: 065
     Dates: start: 2014, end: 201611
  6. ASPIRIN CARDIO [Suspect]
     Active Substance: ASPIRIN
     Indication: MYELOPROLIFERATIVE NEOPLASM
     Dosage: 1 DF, QD
     Route: 048
     Dates: end: 201611
  7. MORPHIN [Concomitant]
     Active Substance: MORPHINE
     Indication: PRODUCT USED FOR UNKNOWN INDICATION
     Dosage: 6 MG, UNK
     Route: 065
     Dates: start: 20170128, end: 20170128

REACTIONS (7)
  - Histiocytosis haematophagic [Fatal]
  - Thrombocytopenia [Fatal]
  - Cardiac failure [Fatal]
  - Anaemia [Unknown]
  - Pancytopenia [Unknown]
  - Gastrointestinal haemorrhage [Fatal]
  - Leukopenia [Unknown]

NARRATIVE: CASE EVENT DATE: 201611
